FAERS Safety Report 20700773 (Version 1)
Quarter: 2022Q2

REPORT INFORMATION
  Report Type: Spontaneous
  Country: AT (occurrence: AT)
  Receive Date: 20220412
  Receipt Date: 20220412
  Transmission Date: 20220721
  Serious: Yes (Hospitalization, Other)
  Sender: FDA-Public Use
  Company Number: AT-ROCHE-3016595

PATIENT
  Age: 47 Year
  Sex: Female

DRUGS (32)
  1. TUKYSA [Suspect]
     Active Substance: TUCATINIB
     Indication: HER2 positive breast cancer
     Dosage: 150 MG, QID
     Route: 048
     Dates: start: 20210512, end: 20210513
  2. TUKYSA [Suspect]
     Active Substance: TUCATINIB
     Dosage: 150 MG, QID
     Route: 048
     Dates: start: 20210515, end: 20211124
  3. DENOSUMAB [Suspect]
     Active Substance: DENOSUMAB
     Indication: HER2 positive breast cancer
     Dosage: MOST RECENT DOSE PRIOR TO THE EVENT: 18/SEP/2018
     Route: 058
     Dates: start: 20180918
  4. PERTUZUMAB [Suspect]
     Active Substance: PERTUZUMAB
     Indication: HER2 positive breast cancer
     Dosage: 840 MG, Q3WEEKS
     Route: 042
     Dates: start: 20180924
  5. PERTUZUMAB [Suspect]
     Active Substance: PERTUZUMAB
     Dosage: MOST RECENT DOSE PRIOR TO THE EVENT: 10/SEP/2020
     Route: 042
     Dates: start: 20181015
  6. DOCETAXEL [Suspect]
     Active Substance: DOCETAXEL
     Indication: HER2 positive breast cancer
     Dosage: MOST RECENT DOSE ON 23/JAN/2019
     Route: 042
     Dates: start: 20180924
  7. TRASTUZUMAB [Suspect]
     Active Substance: TRASTUZUMAB
     Indication: HER2 positive breast cancer
     Dosage: 8 MG/KG, Q3WEEKS
     Route: 041
     Dates: start: 20180924
  8. TRASTUZUMAB [Suspect]
     Active Substance: TRASTUZUMAB
     Dosage: 6 MG/KG, Q3WEEKS
     Route: 041
     Dates: start: 20181015, end: 20200910
  9. TRASTUZUMAB [Suspect]
     Active Substance: TRASTUZUMAB
     Dosage: MOST RECENT DOSE PRIOR TO THE EVENT:03/NOV/2021
     Route: 041
     Dates: start: 20210512, end: 20211103
  10. ADO-TRASTUZUMAB EMTANSINE [Suspect]
     Active Substance: ADO-TRASTUZUMAB EMTANSINE
     Indication: HER2 positive breast cancer
     Dosage: LAST DRUG ADMINISTRATION PRIOR TO AE- 21/APR/2021
     Route: 042
     Dates: start: 20201001
  11. CAPECITABINE [Suspect]
     Active Substance: CAPECITABINE
     Indication: HER2 positive breast cancer
     Dosage: 500 MG
     Route: 048
     Dates: start: 20210512, end: 20210513
  12. CAPECITABINE [Suspect]
     Active Substance: CAPECITABINE
     Dosage: MOST RECENT DOSE PRIOR TO THE EVENT: 24/NOV/2021
     Route: 048
     Dates: start: 20210515
  13. ZOFRAN [Concomitant]
     Active Substance: ONDANSETRON HYDROCHLORIDE
     Dosage: 1.00 AMPULE
     Route: 042
     Dates: start: 20180924, end: 20210421
  14. ZOFRAN [Concomitant]
     Active Substance: ONDANSETRON HYDROCHLORIDE
     Dosage: PRN (AS NEEDED)
     Route: 048
     Dates: start: 20181016, end: 20190308
  15. ALPRAZOLAM [Concomitant]
     Active Substance: ALPRAZOLAM
     Dosage: PRN (AS NEEDED)
     Route: 048
     Dates: start: 20181114
  16. PRAM [CITALOPRAM HYDROBROMIDE] [Concomitant]
     Route: 048
  17. XGEVA [Concomitant]
     Active Substance: DENOSUMAB
     Route: 013
     Dates: start: 20180918
  18. TAMOXIFEN [Concomitant]
     Active Substance: TAMOXIFEN
     Route: 048
     Dates: start: 20200325, end: 20200930
  19. CALCIDURAN [ASCORBIC ACID;CALCIUM PHOSPHATE;CITRIC ACID;COLECALCIFEROL [Concomitant]
     Route: 048
     Dates: start: 20190827
  20. MODERNA COVID-19 VACCINE [Concomitant]
     Active Substance: ELASOMERAN
     Route: 030
     Dates: start: 20210315
  21. MODERNA COVID-19 VACCINE [Concomitant]
     Active Substance: ELASOMERAN
     Dosage: 0.5 ML
     Route: 030
     Dates: start: 20210412
  22. DEXAMETHASONE [Concomitant]
     Active Substance: DEXAMETHASONE
     Dosage: 8 MG, QMONTH
     Route: 048
     Dates: start: 20181016, end: 20181017
  23. KEPPRA [Concomitant]
     Active Substance: LEVETIRACETAM
     Indication: Epilepsy
     Route: 048
     Dates: start: 20210513
  24. NOVALGIN (METAMIZOLE SODIUM) [Concomitant]
     Active Substance: METAMIZOLE SODIUM
     Dosage: PRN (AS NEEDED)
     Route: 048
     Dates: start: 2018, end: 20210309
  25. TRAMADOL [Concomitant]
     Active Substance: TRAMADOL
     Route: 048
     Dates: start: 2018, end: 20190514
  26. LORAZEPAM [Concomitant]
     Active Substance: LORAZEPAM
     Indication: Epilepsy
     Route: 042
     Dates: start: 20210513
  27. EMEND [Concomitant]
     Active Substance: APREPITANT
     Dosage: OTHER 4 DAYS CONSECUTIVELY EVERY 4 WEEKS
     Route: 048
     Dates: start: 20181114, end: 20190125
  28. LOVENOX [Concomitant]
     Active Substance: ENOXAPARIN SODIUM
     Route: 058
     Dates: start: 20211124
  29. TRAMADOL [Concomitant]
     Active Substance: TRAMADOL
     Dosage: PRN (AS NEEDED
     Route: 048
     Dates: start: 2018, end: 20190308
  30. DRONABINOL [Concomitant]
     Active Substance: DRONABINOL
     Dosage: 2.5 %
     Route: 048
     Dates: start: 20210304
  31. DRONABINOL [Concomitant]
     Active Substance: DRONABINOL
     Dosage: 2 GTT
     Route: 048
     Dates: start: 20190123
  32. ERYTHROPOIETIN [Concomitant]
     Active Substance: ERYTHROPOIETIN
     Route: 058
     Dates: start: 20181016, end: 20190308

REACTIONS (4)
  - Soft tissue infection [Recovered/Resolved]
  - Syncope [Recovered/Resolved]
  - Hypokalaemia [Recovered/Resolved]
  - Diarrhoea [Recovered/Resolved]

NARRATIVE: CASE EVENT DATE: 20211123
